FAERS Safety Report 17251885 (Version 2)
Quarter: 2020Q1

REPORT INFORMATION
  Report Type: Spontaneous
  Country: JP (occurrence: JP)
  Receive Date: 20200109
  Receipt Date: 20200309
  Transmission Date: 20200409
  Serious: Yes (Death, Life-Threatening, Hospitalization, Other)
  Sender: FDA-Public Use
  Company Number: JP-ELI_LILLY_AND_COMPANY-JP202001002651

PATIENT
  Age: 63 Year
  Sex: Female
  Weight: 39 kg

DRUGS (5)
  1. MIYA-BM [Concomitant]
     Active Substance: CLOSTRIDIUM BUTYRICUM SPORES STRAIN M-55
     Indication: PROPHYLAXIS AGAINST DIARRHOEA
     Dosage: 3 DOSAGE FORM, TID
     Route: 048
     Dates: start: 20190821, end: 20191126
  2. VERZENIO [Suspect]
     Active Substance: ABEMACICLIB
     Indication: BREAST CANCER RECURRENT
     Dosage: 150 MG, BID
     Route: 048
     Dates: start: 20190821, end: 20191126
  3. LETROZOLE. [Suspect]
     Active Substance: LETROZOLE
     Indication: BREAST CANCER RECURRENT
     Dosage: 2.5 MG, DAILY
     Route: 048
     Dates: start: 20190821, end: 20191126
  4. CODEINE PHOSPHATE [Concomitant]
     Active Substance: CODEINE PHOSPHATE
     Indication: COUGH
     Dosage: 2 G, TID
     Route: 048
     Dates: start: 20190821, end: 20191126
  5. LOPEMIN [LOPERAMIDE HYDROCHLORIDE] [Concomitant]
     Active Substance: LOPERAMIDE HYDROCHLORIDE
     Indication: DIARRHOEA
     Dosage: UNK
     Route: 048
     Dates: start: 20190821, end: 20191126

REACTIONS (8)
  - Pneumonia aspiration [Fatal]
  - Computerised tomogram abnormal [Unknown]
  - Carbohydrate antigen 15-3 increased [Recovered/Resolved]
  - Bronchopulmonary aspergillosis [Fatal]
  - Atypical mycobacterial infection [Unknown]
  - Respiratory failure [Unknown]
  - Pneumonia [Unknown]
  - Pulmonary cavitation [Unknown]

NARRATIVE: CASE EVENT DATE: 20190917
